FAERS Safety Report 7681161-8 (Version None)
Quarter: 2011Q3

REPORT INFORMATION
  Report Type: 
  Country: None (occurrence: None)
  Receive Date: 20110804
  Receipt Date: 20110729
  Transmission Date: 20111222
  Serious: Yes (Death)
  Sender: FDA-Public Use
  Company Number: 2011SP034980

PATIENT
  Age: 28 Year
  Sex: Female

DRUGS (3)
  1. CLONAZEPAM [Suspect]
     Indication: ANXIETY DISORDER
  2. CITALOPRAM HYDROBROMIDE [Suspect]
  3. MIRTAZAPINE [Suspect]

REACTIONS (6)
  - COMPLETED SUICIDE [None]
  - MANIA [None]
  - INSOMNIA [None]
  - SUICIDE ATTEMPT [None]
  - GUN SHOT WOUND [None]
  - INTENTIONAL SELF-INJURY [None]
